FAERS Safety Report 14092289 (Version 2)
Quarter: 2017Q4

REPORT INFORMATION
  Report Type: Spontaneous
  Country: US (occurrence: US)
  Receive Date: 20171016
  Receipt Date: 20171110
  Transmission Date: 20180321
  Serious: Yes (Death, Hospitalization)
  Sender: FDA-Public Use
  Company Number: US-JNJFOC-20171012124

PATIENT
  Age: 79 Year
  Sex: Male
  Weight: 75.52 kg

DRUGS (1)
  1. ZYTIGA [Suspect]
     Active Substance: ABIRATERONE ACETATE
     Indication: PROSTATE CANCER METASTATIC
     Route: 048
     Dates: start: 20170823, end: 201709

REACTIONS (5)
  - Pneumonia [Fatal]
  - Septic shock [Fatal]
  - Sepsis [Fatal]
  - Urinary tract infection bacterial [Fatal]
  - Prostate cancer metastatic [Fatal]

NARRATIVE: CASE EVENT DATE: 20170904
